FAERS Safety Report 15347501 (Version 1)
Quarter: 2018Q3

REPORT INFORMATION
  Report Type: Spontaneous
  Country: DE (occurrence: DE)
  Receive Date: 20180904
  Receipt Date: 20180904
  Transmission Date: 20181010
  Serious: Yes (Other)
  Sender: FDA-Public Use
  Company Number: DE-009507513-1808DEU012331

PATIENT
  Sex: Female

DRUGS (6)
  1. CHLORPROTHIXENE [Concomitant]
     Active Substance: CHLORPROTHIXENE
  2. IMPLANON [Suspect]
     Active Substance: ETONOGESTREL
     Route: 059
  3. PIPAMPERONE [Concomitant]
     Active Substance: PIPAMPERONE
  4. VALERIAN [Concomitant]
     Active Substance: VALERIAN
  5. FLUANXOL [Concomitant]
     Active Substance: FLUPENTIXOL
  6. LASEA [Concomitant]

REACTIONS (1)
  - Mental disorder [Unknown]
